FAERS Safety Report 14598688 (Version 1)
Quarter: 2018Q1

REPORT INFORMATION
  Report Type: Spontaneous
  Country: US (occurrence: US)
  Receive Date: 20180302
  Receipt Date: 20180302
  Transmission Date: 20180509
  Serious: Yes (Hospitalization)
  Sender: FDA-Public Use
  Company Number: None

PATIENT
  Age: 4 Year
  Sex: Male
  Weight: 25.4 kg

DRUGS (1)
  1. TACROLIMUS. [Suspect]
     Active Substance: TACROLIMUS
     Indication: IMMUNOSUPPRESSION
     Dates: start: 20180210, end: 20180212

REACTIONS (8)
  - Delirium [None]
  - Somnolence [None]
  - Neurotoxicity [None]
  - Therapy change [None]
  - Mental status changes [None]
  - Tremor [None]
  - Aphasia [None]
  - Dyskinesia [None]

NARRATIVE: CASE EVENT DATE: 20180213
